FAERS Safety Report 9259300 (Version 1)
Quarter: 2013Q2

REPORT INFORMATION
  Report Type: Spontaneous
  Country: US (occurrence: US)
  Receive Date: 20130427
  Receipt Date: 20130427
  Transmission Date: 20140414
  Serious: Yes (Other)
  Sender: FDA-Public Use
  Company Number: US-UCBSA-084270

PATIENT
  Age: 48 Year
  Sex: Female

DRUGS (1)
  1. CIMZIA [Suspect]
     Indication: CROHN^S DISEASE
     Dates: start: 20120801

REACTIONS (3)
  - Herpes virus infection [Recovering/Resolving]
  - Allergic respiratory disease [Not Recovered/Not Resolved]
  - Lymphadenopathy [Not Recovered/Not Resolved]
